FAERS Safety Report 15458407 (Version 1)
Quarter: 2018Q3

REPORT INFORMATION
  Report Type: Spontaneous
  Country: US (occurrence: US)
  Receive Date: 20180929
  Receipt Date: 20180929
  Transmission Date: 20181010
  Serious: Yes (Life-Threatening, Other)
  Sender: FDA-Public Use
  Company Number: None

PATIENT
  Age: 68 Year
  Sex: Female
  Weight: 52.2 kg

DRUGS (14)
  1. BACLOFEN 10MG TABLET [Suspect]
     Active Substance: BACLOFEN
     Indication: UPPER MOTOR NEURONE LESION
     Dosage: ?          QUANTITY:2 DF DOSAGE FORM;?
     Route: 048
     Dates: start: 20180801
  2. PANTOPRAZOLE [Concomitant]
     Active Substance: PANTOPRAZOLE
  3. LIOTHYRONINE [Concomitant]
     Active Substance: LIOTHYRONINE
  4. CLARITIN [Concomitant]
     Active Substance: LORATADINE
  5. BAYER LOW DOSE (ENTERIC) [Concomitant]
  6. COLACE [Concomitant]
     Active Substance: DOCUSATE SODIUM
  7. CITRACAL (CALCIUM CITRATE W D3) [Concomitant]
  8. VITAMIN B12 [Concomitant]
     Active Substance: CYANOCOBALAMIN
  9. SYNTHROID [Concomitant]
     Active Substance: LEVOTHYROXINE SODIUM
  10. BACLOFEN. [Concomitant]
     Active Substance: BACLOFEN
  11. ESTRADIOL. [Concomitant]
     Active Substance: ESTRADIOL
  12. FUROSEMIDE. [Concomitant]
     Active Substance: FUROSEMIDE
  13. CENTRUM SILVER MULTIVITAMIN/MULTIMINERAL?WOMEN 50+ [Concomitant]
  14. MAGNESIUM [Concomitant]
     Active Substance: MAGNESIUM

REACTIONS (10)
  - Wheezing [None]
  - Foreign body in respiratory tract [None]
  - Rhinorrhoea [None]
  - Dyspnoea [None]
  - Product substitution issue [None]
  - Product quality issue [None]
  - Underdose [None]
  - Product use complaint [None]
  - Choking [None]
  - Lacrimation increased [None]

NARRATIVE: CASE EVENT DATE: 20180801
